FAERS Safety Report 7044032-6 (Version None)
Quarter: 2010Q4

REPORT INFORMATION
  Report Type: 
  Country: None (occurrence: None)
  Receive Date: 20101013
  Receipt Date: 20101013
  Transmission Date: 20110411
  Serious: Yes (Other)
  Sender: FDA-Public Use
  Company Number: None

PATIENT
  Age: 60 Year
  Sex: Female
  Weight: 65.7716 kg

DRUGS (1)
  1. ALENDRONATE SODIUM [Suspect]
     Indication: OSTEOPENIA
     Dosage: 1 TABLET ONCE A WEEK PO
     Route: 048
     Dates: start: 20080419, end: 20100801

REACTIONS (6)
  - ARTHRALGIA [None]
  - ATRIAL FLUTTER [None]
  - FIBULA FRACTURE [None]
  - JOINT SWELLING [None]
  - STRESS FRACTURE [None]
  - TACHYCARDIA [None]
